FAERS Safety Report 12404555 (Version 1)
Quarter: 2016Q2

REPORT INFORMATION
  Report Type: Spontaneous
  Country: IT (occurrence: IT)
  Receive Date: 20160525
  Receipt Date: 20160525
  Transmission Date: 20160815
  Serious: Yes (Hospitalization)
  Sender: FDA-Public Use
  Company Number: IT-SA-2015SA088081

PATIENT
  Age: 73 Year
  Sex: Male

DRUGS (2)
  1. FUROSEMIDE. [Suspect]
     Active Substance: FUROSEMIDE
     Route: 065
  2. OMEPRAZOLE. [Suspect]
     Active Substance: OMEPRAZOLE
     Route: 065

REACTIONS (6)
  - Hypomagnesaemia [Recovering/Resolving]
  - Hypocalcaemia [Recovering/Resolving]
  - Dysarthria [Recovering/Resolving]
  - Hypokalaemia [Recovering/Resolving]
  - Somnolence [Recovering/Resolving]
  - Pneumonia [Recovered/Resolved]
